FAERS Safety Report 25577111 (Version 1)
Quarter: 2025Q3

REPORT INFORMATION
  Report Type: Spontaneous
  Country: BR (occurrence: BR)
  Receive Date: 20250718
  Receipt Date: 20250718
  Transmission Date: 20251021
  Serious: Yes (Hospitalization)
  Sender: ABBVIE
  Company Number: BR-ABBVIE-6377263

PATIENT

DRUGS (1)
  1. BOTOX [Suspect]
     Active Substance: ONABOTULINUMTOXINA
     Indication: Skin cosmetic procedure
     Route: 065

REACTIONS (3)
  - Botulism [Unknown]
  - Suspected product contamination [Unknown]
  - Muscular weakness [Recovered/Resolved]

NARRATIVE: CASE EVENT DATE: 20250629
